FAERS Safety Report 16004520 (Version 6)
Quarter: 2019Q2

REPORT INFORMATION
  Report Type: Spontaneous
  Country: US (occurrence: US)
  Receive Date: 20190226
  Receipt Date: 20190507
  Transmission Date: 20190711
  Serious: Yes (Death)
  Sender: FDA-Public Use
  Company Number: US-CELGENEUS-USA-20190206811

PATIENT
  Age: 83 Year
  Sex: Male

DRUGS (4)
  1. ARANESP [Concomitant]
     Active Substance: DARBEPOETIN ALFA
     Indication: SUPPORTIVE CARE
     Route: 065
  2. CEPHALEXIN. [Concomitant]
     Active Substance: CEPHALEXIN
     Indication: PRODUCT USED FOR UNKNOWN INDICATION
     Route: 065
  3. GRANIX [Concomitant]
     Active Substance: TBO-FILGRASTIM
     Indication: SUPPORTIVE CARE
     Route: 065
  4. REVLIMID [Suspect]
     Active Substance: LENALIDOMIDE
     Indication: REFRACTORY ANAEMIA WITH AN EXCESS OF BLASTS
     Dosage: 10 MILLIGRAM
     Route: 048
     Dates: start: 20181214, end: 20190110

REACTIONS (6)
  - Cardiomyopathy [Fatal]
  - Drug ineffective [Unknown]
  - Myelodysplastic syndrome [Fatal]
  - Acute respiratory failure [Fatal]
  - Pneumonia [Fatal]
  - Leukaemia [Fatal]

NARRATIVE: CASE EVENT DATE: 20190117
